FAERS Safety Report 17820226 (Version 1)
Quarter: 2020Q2

REPORT INFORMATION
  Report Type: Spontaneous
  Country: US (occurrence: US)
  Receive Date: 20200525
  Receipt Date: 20200525
  Transmission Date: 20200714
  Serious: Yes (Other)
  Sender: FDA-Public Use
  Company Number: US-MICRO LABS LIMITED-ML2020-01594

PATIENT
  Age: 75 Year
  Sex: Female

DRUGS (3)
  1. PREDNISONE. [Suspect]
     Active Substance: PREDNISONE
  2. APIXABAN [Suspect]
     Active Substance: APIXABAN
     Indication: PULMONARY EMBOLISM
  3. ASPIRIN. [Suspect]
     Active Substance: ASPIRIN

REACTIONS (2)
  - Drug interaction [Unknown]
  - Erosive oesophagitis [Unknown]
